FAERS Safety Report 10560841 (Version 4)
Quarter: 2015Q1

REPORT INFORMATION
  Report Type: Spontaneous
  Country: ES (occurrence: ES)
  Receive Date: 20141103
  Receipt Date: 20150116
  Transmission Date: 20150720
  Serious: Yes (Other)
  Sender: FDA-Public Use
  Company Number: ES-AMGEN-ESPSP2014076967

PATIENT
  Age: 57 Year
  Sex: Female

DRUGS (15)
  1. CORTISON [Concomitant]
     Active Substance: CORTISONE ACETATE
     Dosage: 10 MG, 1X/DAY
  2. MODIODAL [Concomitant]
     Active Substance: MODAFINIL
     Indication: FIBROMYALGIA
     Dosage: UNK, ONCE A DAY
  3. HIDROFEROL [Concomitant]
     Active Substance: CALCIFEDIOL
     Indication: OSTEOPENIA
     Dosage: 1 AMPOULE, WEEKLY
  4. ENBREL [Suspect]
     Active Substance: ETANERCEPT
     Indication: PSORIATIC ARTHROPATHY
     Dosage: 50 MG, WEEKLY
     Route: 058
     Dates: start: 20140825, end: 201412
  5. CORTISON [Concomitant]
     Active Substance: CORTISONE ACETATE
     Indication: RHEUMATOID ARTHRITIS
     Dosage: 10 MG, ONCE A DAY
  6. CYMBALTA [Concomitant]
     Active Substance: DULOXETINE HYDROCHLORIDE
     Dosage: 60 MG, 1X/DAY
  7. DEPRAX                             /00447702/ [Concomitant]
     Active Substance: TRAZODONE HYDROCHLORIDE
     Indication: SLEEP DISORDER
     Dosage: 50 MG (HALF OF 100 MG), 1X/DAY AT NIGHT
  8. OMEPRAZOL                          /00661201/ [Concomitant]
     Active Substance: OMEPRAZOLE
     Indication: PROPHYLAXIS
     Dosage: 20 MG, 1X/DAY
  9. DEPRAX                             /00447702/ [Concomitant]
     Active Substance: TRAZODONE HYDROCHLORIDE
     Indication: SLEEP DISORDER
     Dosage: 50 MG, QD (100MG, HALF AT NIGHT)
  10. LYRICA [Concomitant]
     Active Substance: PREGABALIN
     Dosage: UNK UNK, 2X/DAY
  11. CYMBALTA [Concomitant]
     Active Substance: DULOXETINE HYDROCHLORIDE
     Indication: FIBROMYALGIA
     Dosage: 60 MG, ONCE A DAY
  12. MODIODAL [Concomitant]
     Active Substance: MODAFINIL
     Dosage: UNK UNK, 1X/DAY
  13. VISCOFRESH [Concomitant]
     Indication: EYE DISORDER
     Dosage: UNK UNK, 1X/DAY AT NIGHT
  14. OMEPRAZOL                          /00661201/ [Concomitant]
     Active Substance: OMEPRAZOLE
     Indication: PROPHYLAXIS
     Dosage: 20 MG, ONCE A DAY
  15. LYRICA [Concomitant]
     Active Substance: PREGABALIN
     Indication: FIBROMYALGIA
     Dosage: UNK, TWO TIMES A DAY

REACTIONS (12)
  - Oral herpes [Recovered/Resolved]
  - Blood cholesterol increased [Not Recovered/Not Resolved]
  - Injection site reaction [Not Recovered/Not Resolved]
  - Drug ineffective [Not Recovered/Not Resolved]
  - Pyrexia [Recovered/Resolved]
  - Tongue ulceration [Recovered/Resolved]
  - Injection site urticaria [Not Recovered/Not Resolved]
  - Injection site pruritus [Not Recovered/Not Resolved]
  - Arthritis [Not Recovered/Not Resolved]
  - Oropharyngeal candidiasis [Recovered/Resolved]
  - Headache [Recovered/Resolved]
  - Injection site erythema [Not Recovered/Not Resolved]

NARRATIVE: CASE EVENT DATE: 2014
